FAERS Safety Report 4672833-8 (Version None)
Quarter: 2005Q2

REPORT INFORMATION
  Report Type: 
  Country: None (occurrence: None)
  Receive Date: 20050523
  Receipt Date: 20050513
  Transmission Date: 20051028
  Serious: Yes (Hospitalization, Other)
  Sender: FDA-Public Use
  Company Number: KII-2005-0016578

PATIENT
  Age: 57 Year
  Sex: Male

DRUGS (1)
  1. OXYCODONE HCL [Suspect]
     Dosage: ORAL
     Route: 048

REACTIONS (13)
  - BLOOD BICARBONATE ABNORMAL [None]
  - BLOOD CREATINE PHOSPHOKINASE INCREASED [None]
  - BLOOD CREATININE INCREASED [None]
  - BLOOD PH DECREASED [None]
  - BLOOD UREA INCREASED [None]
  - CHROMATURIA [None]
  - DELIRIUM TREMENS [None]
  - HYPOTENSION [None]
  - LETHARGY [None]
  - OXYGEN SATURATION DECREASED [None]
  - PO2 DECREASED [None]
  - RESTLESSNESS [None]
  - SOMNOLENCE [None]
